FAERS Safety Report 4713081-2 (Version None)
Quarter: 2005Q3

REPORT INFORMATION
  Report Type: 
  Country: None (occurrence: None)
  Receive Date: 20050713
  Receipt Date: 20050706
  Transmission Date: 20060218
  Serious: Yes (Death, Hospitalization, Other)
  Sender: FDA-Public Use
  Company Number: PHRM2005FR02032

PATIENT
  Age: 54 Year
  Sex: Female

DRUGS (9)
  1. TAXOL [Concomitant]
     Indication: BREAST CANCER
     Dosage: 100 MG
     Route: 042
     Dates: start: 20050405, end: 20050405
  2. TAXOL [Concomitant]
     Dosage: 100 MG
     Route: 042
     Dates: start: 20050512, end: 20050512
  3. SOLU-MEDROL [Concomitant]
     Indication: BREAST CANCER
     Dosage: 60 MG
     Route: 042
     Dates: start: 20050405, end: 20050405
  4. SOLU-MEDROL [Concomitant]
     Dosage: 60 MG
     Route: 042
     Dates: start: 20050512, end: 20050512
  5. AZANTAC [Concomitant]
     Dosage: 50 MG
     Route: 042
     Dates: start: 20050405, end: 20050405
  6. AZANTAC [Concomitant]
     Dosage: 50 MG
     Route: 042
     Dates: start: 20050512, end: 20050512
  7. POLARAMINE [Concomitant]
     Dosage: 5 MG
     Route: 042
     Dates: start: 20050405, end: 20050405
  8. POLARAMINE [Concomitant]
     Dosage: 5 MG
     Route: 042
     Dates: start: 20050512, end: 20050512
  9. ZOMETA [Suspect]
     Indication: METASTASES TO BONE
     Dosage: UNK, UNK
     Route: 042
     Dates: start: 20021008, end: 20050510

REACTIONS (6)
  - ASCITES [None]
  - ASEPTIC NECROSIS BONE [None]
  - ILEUS [None]
  - MALIGNANT NEOPLASM PROGRESSION [None]
  - TOOTH ABSCESS [None]
  - VOMITING [None]
